FAERS Safety Report 6914223-0 (Version None)
Quarter: 2010Q3

REPORT INFORMATION
  Report Type: 
  Country: None (occurrence: None)
  Receive Date: 20100809
  Receipt Date: 20100806
  Transmission Date: 20110219
  Serious: Yes (Other)
  Sender: FDA-Public Use
  Company Number: A0848753A

PATIENT
  Age: 29 Year
  Sex: Female

DRUGS (3)
  1. COMBIVIR [Suspect]
     Indication: ANTIVIRAL TREATMENT
     Dosage: 2TAB PER DAY
     Route: 048
     Dates: start: 20080621, end: 20080813
  2. VIRAMUNE [Suspect]
     Indication: ANTIVIRAL TREATMENT
     Dosage: 400MG PER DAY
     Route: 048
     Dates: start: 20080226
  3. TRUVADA [Suspect]
     Indication: ANTIVIRAL TREATMENT
     Dosage: 1TAB PER DAY
     Route: 048
     Dates: start: 20080226

REACTIONS (2)
  - ABORTION SPONTANEOUS [None]
  - DRUG EXPOSURE DURING PREGNANCY [None]
